FAERS Safety Report 24054605 (Version 1)
Quarter: 2024Q3

REPORT INFORMATION
  Report Type: Spontaneous
  Country: US (occurrence: US)
  Receive Date: 20240705
  Receipt Date: 20240705
  Transmission Date: 20241017
  Serious: No
  Sender: AMGEN
  Company Number: US-AMGEN-USASP2024128998

PATIENT
  Age: 40 Year
  Sex: Female

DRUGS (10)
  1. PREDNISONE [Suspect]
     Active Substance: PREDNISONE
     Indication: Eczema
     Dosage: 40 MILLIGRAM, QD, FOR 7 DAYS WITH TAPER
     Route: 065
  2. HUMAN IMMUNOGLOBULIN G [Suspect]
     Active Substance: HUMAN IMMUNOGLOBULIN G
     Indication: Chronic inflammatory demyelinating polyradiculoneuropathy
     Dosage: 2 GRAM PER KILOGRAM, Q3WK
     Route: 042
  3. HUMAN IMMUNOGLOBULIN G [Suspect]
     Active Substance: HUMAN IMMUNOGLOBULIN G
     Dosage: 2 GRAM PER KILOGRAM, Q4WK
     Route: 042
  4. TRIAMCINOLONE [Concomitant]
     Active Substance: TRIAMCINOLONE
     Indication: Eczema
     Dosage: 0.1 PERCENT
  5. CLOBETASOL [Concomitant]
     Active Substance: CLOBETASOL
     Indication: Eczema
     Dosage: 0.05 PERCENT
  6. CRISABOROLE [Concomitant]
     Active Substance: CRISABOROLE
     Indication: Eczema
     Dosage: 2 PERCENT
  7. TACROLIMUS [Concomitant]
     Active Substance: TACROLIMUS
     Indication: Eczema
     Dosage: 0.1 PERCENT
  8. DUPILUMAB [Concomitant]
     Active Substance: DUPILUMAB
     Indication: Eczema
     Dosage: 600 MILLIGRAM
     Route: 058
  9. DUPILUMAB [Concomitant]
     Active Substance: DUPILUMAB
     Dosage: 300 MILLIGRAM
     Route: 058
  10. METHYLPREDNISOLONE [Concomitant]
     Active Substance: METHYLPREDNISOLONE
     Dosage: 250 MILLIGRAM, INFUSION

REACTIONS (1)
  - Condition aggravated [Unknown]
